FAERS Safety Report 7393704-2 (Version None)
Quarter: 2011Q2

REPORT INFORMATION
  Report Type: 
  Country: None (occurrence: None)
  Receive Date: 20110405
  Receipt Date: 20110322
  Transmission Date: 20111010
  Serious: Yes (Other)
  Sender: FDA-Public Use
  Company Number: CA-JNJFOC-20110309700

PATIENT
  Sex: Female
  Weight: 76 kg

DRUGS (7)
  1. FERROUS SULFATE TAB [Concomitant]
  2. REMICADE [Suspect]
     Indication: COLITIS ULCERATIVE
     Route: 042
  3. MESALAMINE [Concomitant]
     Indication: ANAEMIA
  4. NEXIUM [Concomitant]
  5. REMICADE [Suspect]
     Route: 042
  6. AMITRIPTYLINE [Concomitant]
  7. CALTRATE [Concomitant]

REACTIONS (6)
  - HEART RATE INCREASED [None]
  - RASH [None]
  - PRURITUS [None]
  - HEADACHE [None]
  - BLOOD PRESSURE INCREASED [None]
  - DYSPNOEA [None]
